FAERS Safety Report 5230336-6 (Version None)
Quarter: 2007Q1

REPORT INFORMATION
  Report Type: 
  Country: None (occurrence: None)
  Receive Date: 20070206
  Receipt Date: 20070126
  Transmission Date: 20070707
  Serious: Yes (Life-Threatening, Hospitalization, Other)
  Sender: FDA-Public Use
  Company Number: US-JNJFOC-20061200651

PATIENT
  Sex: Male

DRUGS (3)
  1. REMICADE [Suspect]
     Route: 042
  2. REMICADE [Suspect]
     Indication: DRUG USE FOR UNKNOWN INDICATION
     Dosage: FEW YEARS
     Route: 042
  3. DIOVAN [Concomitant]

REACTIONS (3)
  - BRAIN NEOPLASM [None]
  - CEREBRAL HAEMORRHAGE [None]
  - HYDROCEPHALUS [None]
